FAERS Safety Report 4841327-9 (Version None)
Quarter: 2005Q4

REPORT INFORMATION
  Report Type: 
  Country: None (occurrence: None)
  Receive Date: 20051130
  Receipt Date: 20051117
  Transmission Date: 20060501
  Serious: Yes (Other)
  Sender: FDA-Public Use
  Company Number: GB-GLAXOSMITHKLINE-B0400880A

PATIENT
  Age: 68 Year
  Sex: Female
  Weight: 10.2 kg

DRUGS (3)
  1. AVANDIA [Suspect]
     Route: 048
     Dates: start: 20050316, end: 20051123
  2. METFORMIN [Concomitant]
     Dosage: 500MG THREE TIMES PER DAY
     Route: 048
     Dates: start: 20031029
  3. WARFARIN [Concomitant]
     Dosage: 5MG PER DAY
     Route: 048
     Dates: start: 19910701

REACTIONS (4)
  - ANAEMIA [None]
  - BLOOD CHOLESTEROL DECREASED [None]
  - BLOOD POTASSIUM INCREASED [None]
  - BLOOD TRIGLYCERIDES INCREASED [None]
